FAERS Safety Report 6815048-7 (Version None)
Quarter: 2010Q3

REPORT INFORMATION
  Report Type: 
  Country: None (occurrence: None)
  Receive Date: 20100702
  Receipt Date: 20090611
  Transmission Date: 20110219
  Serious: No
  Sender: FDA-Public Use
  Company Number: A0790403A

PATIENT
  Age: 42 Year
  Sex: Female

DRUGS (3)
  1. PARNATE [Suspect]
     Indication: MAJOR DEPRESSION
     Dosage: 60MG PER DAY
     Route: 048
     Dates: start: 20080501
  2. TRANYLCYPROMINE SULFATE [Suspect]
     Indication: MAJOR DEPRESSION
     Dosage: 60MG PER DAY
     Route: 048
     Dates: start: 20070101, end: 20080401
  3. RISPERDAL [Concomitant]

REACTIONS (4)
  - CONSTIPATION [None]
  - DRUG INEFFECTIVE [None]
  - FLUID RETENTION [None]
  - MENTAL DISORDER [None]
